FAERS Safety Report 4630314-1 (Version None)
Quarter: 2005Q2

REPORT INFORMATION
  Report Type: 
  Country: None (occurrence: None)
  Receive Date: 20050405
  Receipt Date: 20050405
  Transmission Date: 20051028
  Serious: No
  Sender: FDA-Public Use
  Company Number: None

PATIENT
  Sex: Male
  Weight: 111.6 kg

DRUGS (4)
  1. CYCLOSPORINE [Suspect]
     Dosage: 6 MG/KG IV OVER 2 HOURS, HOURS 0-2; CYCLOSPORINE 16 MG/KG/DAY CONTINUOUS IV INFUSION HOURS 2-74
     Route: 042
     Dates: start: 20050308
  2. DAUNOMYCIN [Suspect]
     Dosage: 45 MG/M2/DAY CONTINUOUS IV INFUSION HOURS 2-74
     Route: 042
     Dates: start: 20050308
  3. CYTARABINE [Suspect]
     Dosage: 200 MG/M2/DAY CONTINUOUS IV INFUSION HOURS 2-170
     Route: 042
     Dates: start: 20050308
  4. GM-CSF [Suspect]
     Dosage: 250 MCG/M2/DAY IV OR SQ STARTING APPROXIMATELY DAY 15
     Route: 042

REACTIONS (5)
  - CARDIAC ARREST [None]
  - DIALYSIS [None]
  - RENAL FAILURE ACUTE [None]
  - RESPIRATORY FAILURE [None]
  - TUMOUR LYSIS SYNDROME [None]
